FAERS Safety Report 21820663 (Version 2)
Quarter: 2024Q2

REPORT INFORMATION
  Report Type: Spontaneous
  Country: DE (occurrence: DE)
  Receive Date: 20230105
  Receipt Date: 20240408
  Transmission Date: 20240716
  Serious: Yes (Hospitalization)
  Sender: FDA-Public Use
  Company Number: None

PATIENT
  Age: 55 Year
  Sex: Male
  Weight: 72 kg

DRUGS (1)
  1. CIPROFLOXACIN [Suspect]
     Active Substance: CIPROFLOXACIN
     Indication: Prostatitis
     Dosage: DOSAGE TEXT: 2 X 1 TABLET IN THE MORNING AND IN THE EVENING
     Route: 048
     Dates: start: 20210325, end: 20210404

REACTIONS (16)
  - Myalgia [Not Recovered/Not Resolved]
  - Nausea [Recovered/Resolved]
  - Middle insomnia [Not Recovered/Not Resolved]
  - Sleep disorder [Not Recovered/Not Resolved]
  - Abdominal discomfort [Unknown]
  - Diarrhoea [Not Recovered/Not Resolved]
  - Tissue sealing [Not Recovered/Not Resolved]
  - Abdominal pain upper [Not Recovered/Not Resolved]
  - Initial insomnia [Not Recovered/Not Resolved]
  - Dysbiosis [Not Recovered/Not Resolved]
  - Arthritis [Unknown]
  - Weight decreased [Unknown]
  - Nervous system disorder [Unknown]
  - Ill-defined disorder [Unknown]
  - Muscle atrophy [Recovered/Resolved with Sequelae]
  - Sick leave [Recovered/Resolved with Sequelae]

NARRATIVE: CASE EVENT DATE: 20210101
